FAERS Safety Report 5647329-7 (Version None)
Quarter: 2008Q1

REPORT INFORMATION
  Report Type: 
  Country: None (occurrence: None)
  Receive Date: 20080131
  Receipt Date: 20071205
  Transmission Date: 20080703
  Serious: No
  Sender: FDA-Public Use
  Company Number: 163-21880-07110251

PATIENT
  Age: 61 Year
  Sex: Male
  Weight: 79.3795 kg

DRUGS (18)
  1. REVLIMID [Suspect]
     Indication: MULTIPLE MYELOMA
     Dosage: 25 MG, 1 IN1 D, ORAL
     Route: 048
     Dates: start: 20071012, end: 20071204
  2. HYDRALAZINE HCL [Concomitant]
  3. DEXAMETHASONE TAB [Concomitant]
  4. ASPIRIN [Concomitant]
  5. COZAAR [Concomitant]
  6. CARVEDILOL [Concomitant]
  7. CENTRUM SILVER (CENTRUM SILVER) [Concomitant]
  8. FOLIC ACID [Concomitant]
  9. ISOSORBIDE MONONITRATE [Concomitant]
  10. POTASSIUM (POTASSIUM) [Concomitant]
  11. SENNOSIDE (SENNOSIDE A) [Concomitant]
  12. SERTRALINE [Concomitant]
  13. LORAZEPAM [Concomitant]
  14. FUROSEMIDE [Concomitant]
  15. VICODIN [Concomitant]
  16. MORPHINE (MORPHINE) (PILL) [Concomitant]
  17. SMIVASTATIN (SIMVASTATIN) [Concomitant]
  18. IRON SUPPLEMENT (IRON) [Concomitant]

REACTIONS (10)
  - BLOOD PRESSURE DECREASED [None]
  - CONSTIPATION [None]
  - DIARRHOEA [None]
  - DIZZINESS [None]
  - FALL [None]
  - HYPOAESTHESIA [None]
  - OEDEMA PERIPHERAL [None]
  - ORTHOSTATIC HYPOTENSION [None]
  - PLATELET COUNT DECREASED [None]
  - WHITE BLOOD CELL COUNT DECREASED [None]
